FAERS Safety Report 16116832 (Version 1)
Quarter: 2019Q1

REPORT INFORMATION
  Report Type: Spontaneous
  Country: US (occurrence: US)
  Receive Date: 20190221
  Receipt Date: 20190221
  Transmission Date: 20190418
  Serious: No
  Sender: FDA-Public Use
  Company Number: None

PATIENT
  Age: 77 Year
  Sex: Female

DRUGS (2)
  1. IRON [Concomitant]
     Active Substance: IRON
  2. FORTEO [Suspect]
     Active Substance: TERIPARATIDE
     Dates: start: 201901

REACTIONS (2)
  - Abdominal discomfort [None]
  - Constipation [None]

NARRATIVE: CASE EVENT DATE: 20190221
